FAERS Safety Report 18068119 (Version 8)
Quarter: 2021Q4

REPORT INFORMATION
  Report Type: Spontaneous
  Country: US (occurrence: US)
  Receive Date: 20200724
  Receipt Date: 20211101
  Transmission Date: 20220303
  Serious: Yes (Hospitalization, Other)
  Sender: FDA-Public Use
  Company Number: US-SEATTLE GENETICS-2020SGN02807

PATIENT
  Age: 55 Year
  Sex: Female

DRUGS (7)
  1. TUKYSA [Suspect]
     Active Substance: TUCATINIB
     Indication: Breast cancer female
     Dosage: UNK
     Route: 048
  2. TUKYSA [Suspect]
     Active Substance: TUCATINIB
     Dosage: UNK
  3. TUKYSA [Suspect]
     Active Substance: TUCATINIB
     Dosage: UNK
  4. TUKYSA [Suspect]
     Active Substance: TUCATINIB
     Dosage: UNK
  5. TUKYSA [Suspect]
     Active Substance: TUCATINIB
     Dosage: UNK
  6. TUKYSA [Suspect]
     Active Substance: TUCATINIB
     Dosage: UNK
  7. TUKYSA [Suspect]
     Active Substance: TUCATINIB
     Dosage: 250 MG, BID

REACTIONS (11)
  - Brain tumour operation [Unknown]
  - Brain operation [Unknown]
  - Cerebrovascular accident [Unknown]
  - Insomnia [Unknown]
  - Balance disorder [Unknown]
  - Acne [Unknown]
  - Mood swings [Unknown]
  - Motor dysfunction [Unknown]
  - COVID-19 [Unknown]
  - Fatigue [Unknown]
  - Disease progression [Unknown]

NARRATIVE: CASE EVENT DATE: 20200715
